FAERS Safety Report 8418789-3 (Version None)
Quarter: 2012Q2

REPORT INFORMATION
  Report Type: 
  Country: None (occurrence: None)
  Receive Date: 20120607
  Receipt Date: 20120524
  Transmission Date: 20120825
  Serious: Yes (Death)
  Sender: FDA-Public Use
  Company Number: CA-ROCHE-1068895

PATIENT
  Sex: Female
  Weight: 63.106 kg

DRUGS (2)
  1. AVASTIN [Suspect]
     Indication: OVARIAN CANCER
     Route: 042
     Dates: start: 20120201, end: 20120314
  2. ATIVAN [Concomitant]

REACTIONS (1)
  - DEATH [None]
